FAERS Safety Report 11194401 (Version 3)
Quarter: 2015Q3

REPORT INFORMATION
  Report Type: Spontaneous
  Country: US (occurrence: US)
  Receive Date: 20150616
  Receipt Date: 20150904
  Transmission Date: 20151125
  Serious: No
  Sender: FDA-Public Use
  Company Number: US-GLAXOSMITHKLINE-US2015083964

PATIENT
  Sex: Female
  Weight: 34.92 kg

DRUGS (1)
  1. TANZEUM [Suspect]
     Active Substance: ALBIGLUTIDE
     Indication: DIABETES MELLITUS
     Dosage: 30 MG, WE
     Route: 058
     Dates: start: 20150425

REACTIONS (3)
  - Needle issue [Unknown]
  - Drug administration error [Recovered/Resolved]
  - Product quality issue [Recovered/Resolved]
